FAERS Safety Report 13761416 (Version 2)
Quarter: 2017Q4

REPORT INFORMATION
  Report Type: Report from Study
  Country: US (occurrence: US)
  Receive Date: 20170717
  Receipt Date: 20171221
  Transmission Date: 20180320
  Serious: Yes (Death)
  Sender: FDA-Public Use
  Company Number: US-VIFOR (INTERNATIONAL) INC.-VIT-2017-06321

PATIENT
  Sex: Male

DRUGS (19)
  1. ZYPREXA [Concomitant]
     Active Substance: OLANZAPINE
  2. MAGNESIUM HYDROXIDE. [Concomitant]
     Active Substance: MAGNESIUM HYDROXIDE
  3. SENNA [Concomitant]
     Active Substance: SENNA LEAF\SENNOSIDES\SENNOSIDES A AND B
  4. MIRALAX [Concomitant]
     Active Substance: POLYETHYLENE GLYCOL 3350
  5. VELTASSA [Suspect]
     Active Substance: PATIROMER
     Indication: HYPERKALAEMIA
     Route: 048
     Dates: start: 20160811, end: 201705
  6. CLARITIN [Concomitant]
     Active Substance: LORATADINE
  7. APAP [Concomitant]
     Active Substance: ACETAMINOPHEN
  8. LANTUS [Concomitant]
     Active Substance: INSULIN GLARGINE
  9. CALCIUM [Concomitant]
     Active Substance: CALCIUM
  10. CARVEDILOL. [Concomitant]
     Active Substance: CARVEDILOL
  11. FIBER [Concomitant]
     Active Substance: PSYLLIUM HUSK
  12. ALLOPURINOL. [Concomitant]
     Active Substance: ALLOPURINOL
  13. MIRTAZAPINE. [Concomitant]
     Active Substance: MIRTAZAPINE
  14. AMIODARONE [Concomitant]
     Active Substance: AMIODARONE
  15. VITAMINS NOS [Concomitant]
     Active Substance: VITAMINS
  16. FLUOXETINE [Concomitant]
     Active Substance: FLUOXETINE HYDROCHLORIDE
  17. COLECALCIFEROL [Concomitant]
     Active Substance: CHOLECALCIFEROL
  18. ACETYLSALICYLIC ACID [Concomitant]
     Active Substance: ASPIRIN
  19. OMEPRAZOLE. [Concomitant]
     Active Substance: OMEPRAZOLE

REACTIONS (1)
  - Renal disorder [Fatal]

NARRATIVE: CASE EVENT DATE: 2017
